FAERS Safety Report 17630902 (Version 12)
Quarter: 2020Q4

REPORT INFORMATION
  Report Type: Report from Study
  Country: JP (occurrence: JP)
  Receive Date: 20200406
  Receipt Date: 20201016
  Transmission Date: 20210113
  Serious: Yes (Hospitalization, Other)
  Sender: FDA-Public Use
  Company Number: JP-JNJFOC-20200344555

PATIENT
  Age: 68 Year
  Sex: Male
  Weight: 71.5 kg

DRUGS (169)
  1. BARYTGEN                           /00125002/ [Concomitant]
     Indication: COLONOSCOPY
     Dosage: ONCE
     Route: 048
     Dates: start: 20160712, end: 20160712
  2. INDIGOCARMINE DAIICHI [Concomitant]
     Indication: COLONOSCOPY
     Dosage: 5 - 10 ML ONCE
     Route: 061
     Dates: start: 20160712, end: 20160712
  3. SODIUM PICOSULFATE [Concomitant]
     Active Substance: SODIUM PICOSULFATE
     Indication: COLONOSCOPY
     Dosage: 0.75% ?ONCE
     Route: 067
     Dates: start: 20160905, end: 20160905
  4. SODIUM PICOSULFATE [Concomitant]
     Active Substance: SODIUM PICOSULFATE
     Dosage: 0.75% ?ONCE
     Route: 048
     Dates: start: 20160509, end: 20160509
  5. SODIUM PICOSULFATE [Concomitant]
     Active Substance: SODIUM PICOSULFATE
     Dosage: 0.75%
     Dates: start: 20200317
  6. PRIMPERAN [Concomitant]
     Active Substance: METOCLOPRAMIDE HYDROCHLORIDE
     Dates: start: 20200422, end: 20200422
  7. CEFAZOLIN [Concomitant]
     Active Substance: CEFAZOLIN
     Indication: BENIGN PROSTATIC HYPERPLASIA
     Route: 041
     Dates: start: 20191112, end: 20191114
  8. ATROPINE SULFATE. [Concomitant]
     Active Substance: ATROPINE SULFATE
     Indication: COLECTOMY TOTAL
     Route: 042
     Dates: start: 20200528, end: 20200528
  9. BRIDION [Concomitant]
     Active Substance: SUGAMMADEX
     Indication: BENIGN PROSTATIC HYPERPLASIA
     Dosage: ONCE
     Route: 041
     Dates: start: 20191112, end: 20191112
  10. ACELIO [Concomitant]
     Active Substance: ACETAMINOPHEN
     Indication: BENIGN PROSTATIC HYPERPLASIA
     Route: 041
     Dates: start: 20191112, end: 20191112
  11. DAIKENCHUTO [Concomitant]
     Active Substance: HERBALS
     Indication: NASOPHARYNGITIS
     Route: 048
     Dates: start: 20170810, end: 20170817
  12. REMIFENTANIL HYDROCHLORIDE. [Concomitant]
     Active Substance: REMIFENTANIL HYDROCHLORIDE
     Dosage: ONCE
     Route: 042
     Dates: start: 20200528, end: 20200528
  13. BIO-THREE [Concomitant]
     Active Substance: HERBALS
     Indication: COLITIS ULCERATIVE
     Route: 048
     Dates: start: 20160516
  14. AZUNOL                             /00317302/ [Concomitant]
     Indication: PHARYNGITIS
     Dosage: 1-2 ML?AS NEEDED
     Route: 061
     Dates: start: 20160407, end: 20180426
  15. FENTANYL. [Concomitant]
     Active Substance: FENTANYL
     Indication: COLECTOMY TOTAL
     Route: 061
     Dates: start: 20200528, end: 20200528
  16. DERMOVATE [Concomitant]
     Active Substance: CLOBETASOL
     Indication: COLECTOMY TOTAL
     Route: 061
     Dates: start: 20200528, end: 20200528
  17. MIYA-BM [Concomitant]
     Active Substance: CLOSTRIDIUM BUTYRICUM SPORES STRAIN M-55
     Route: 048
     Dates: start: 20160517, end: 20171108
  18. XYLOCAINE [Concomitant]
     Active Substance: LIDOCAINE HYDROCHLORIDE
     Indication: PERIARTHRITIS
     Dosage: ONCE
     Route: 014
     Dates: start: 20160912, end: 20160912
  19. XYLOCAINE [Concomitant]
     Active Substance: LIDOCAINE HYDROCHLORIDE
     Indication: LARYNGOSCOPY
     Dosage: 1%
     Route: 061
     Dates: start: 20170509, end: 20170509
  20. XYLOCAINE [Concomitant]
     Active Substance: LIDOCAINE HYDROCHLORIDE
     Indication: INFECTION PROPHYLAXIS
     Dosage: ONCE
     Route: 014
     Dates: start: 20170718, end: 20170718
  21. XYLOCAINE [Concomitant]
     Active Substance: LIDOCAINE HYDROCHLORIDE
     Dates: start: 20191202, end: 20191202
  22. XYLOCAINE [Concomitant]
     Active Substance: LIDOCAINE HYDROCHLORIDE
     Route: 061
     Dates: start: 20181208, end: 20190124
  23. BARYTGEN                           /00125002/ [Concomitant]
     Dosage: ONCE
     Route: 048
     Dates: start: 20170718, end: 20170718
  24. INDIGOCARMINE DAIICHI [Concomitant]
     Route: 061
     Dates: start: 20200422, end: 20200422
  25. SOLDEM 1 [Concomitant]
     Active Substance: DEXTROSE\SODIUM CHLORIDE\SODIUM LACTATE
     Route: 042
     Dates: start: 20160510, end: 20160510
  26. SODIUM PICOSULFATE [Concomitant]
     Active Substance: SODIUM PICOSULFATE
     Dates: start: 20200421, end: 20200421
  27. PRIMPERAN [Concomitant]
     Active Substance: METOCLOPRAMIDE HYDROCHLORIDE
     Route: 048
     Dates: start: 20160712, end: 20160712
  28. NIFLEC [Concomitant]
     Active Substance: POLYETHYLENE GLYCOLS\POTASSIUM CHLORIDE\SODIUM BICARBONATE\SODIUM CHLORIDE\SODIUM SULFATE
     Dosage: ONCE
     Route: 048
     Dates: start: 20160510, end: 20160510
  29. SALINE                             /00075401/ [Concomitant]
     Active Substance: SODIUM CHLORIDE
     Indication: COMPUTERISED TOMOGRAM ABDOMEN
     Dates: start: 20200318, end: 20200318
  30. BICARBON                           /00049401/ [Concomitant]
     Indication: BENIGN PROSTATIC HYPERPLASIA
     Route: 041
     Dates: start: 20191112, end: 20191112
  31. BRIDION [Concomitant]
     Active Substance: SUGAMMADEX
     Indication: COLECTOMY TOTAL
     Route: 042
     Dates: start: 20200528, end: 20200528
  32. LEVOFLOXACIN HEMIHYDRATE [Concomitant]
     Active Substance: LEVOFLOXACIN
     Indication: BIOPSY PROSTATE
     Route: 048
     Dates: start: 20190909, end: 20190909
  33. ATARAX [Concomitant]
     Active Substance: HYDROXYZINE HYDROCHLORIDE
     Indication: BIOPSY PROSTATE
     Route: 030
     Dates: start: 20190909, end: 20190909
  34. ROCURONIUM [Concomitant]
     Active Substance: ROCURONIUM BROMIDE
     Indication: COLECTOMY TOTAL
     Route: 042
     Dates: start: 20200528, end: 20200528
  35. CALONAL [Concomitant]
     Active Substance: ACETAMINOPHEN
     Indication: MENISCUS INJURY
     Route: 048
     Dates: start: 20181219, end: 20181225
  36. REMIFENTANIL HYDROCHLORIDE. [Concomitant]
     Active Substance: REMIFENTANIL HYDROCHLORIDE
     Indication: COLECTOMY TOTAL
     Dosage: ONCE
     Route: 042
     Dates: start: 20191112, end: 20191112
  37. CARBAZOCHROME W/CINCHOCAINE HYDROCHLORIDE/DIP [Concomitant]
     Route: 041
     Dates: start: 20191112, end: 20191114
  38. FLIVAS [Concomitant]
     Active Substance: NAFTOPIDIL
     Indication: BENIGN PROSTATIC HYPERPLASIA
     Route: 048
     Dates: start: 20160515
  39. OPTIRAY [Concomitant]
     Active Substance: IOVERSOL
     Indication: COMPUTERISED TOMOGRAM ABDOMEN
     Route: 042
     Dates: start: 20200414, end: 20200414
  40. USTEKINUMAB [Suspect]
     Active Substance: USTEKINUMAB
     Dosage: I-8
     Route: 058
  41. USTEKINUMAB [Suspect]
     Active Substance: USTEKINUMAB
     Dosage: (MAINTENANCE STUDY M-0)
     Route: 058
     Dates: start: 20160906
  42. ASACOL [Concomitant]
     Active Substance: MESALAMINE
     Indication: COLITIS ULCERATIVE
     Route: 048
     Dates: start: 20171109, end: 20200526
  43. AMBROXOL HYDROCHLORIDE [Concomitant]
     Active Substance: AMBROXOL HYDROCHLORIDE
     Indication: PHARYNGITIS
     Route: 048
     Dates: start: 20160804, end: 20160817
  44. KENACORT-A                         /00031902/ [Concomitant]
     Active Substance: TRIAMCINOLONE ACETONIDE
     Indication: PERIARTHRITIS
     Dosage: ONCE
     Route: 014
     Dates: start: 20160912, end: 20160912
  45. XYLOCAINE [Concomitant]
     Active Substance: LIDOCAINE HYDROCHLORIDE
     Indication: COLONOSCOPY
     Dosage: ONCE
     Route: 061
     Dates: start: 20160510, end: 20160510
  46. XYLOCAINE [Concomitant]
     Active Substance: LIDOCAINE HYDROCHLORIDE
     Indication: BENIGN PROSTATIC HYPERPLASIA
     Dosage: ONCE
     Route: 014
     Dates: start: 20160906, end: 20160906
  47. XYLOCAINE [Concomitant]
     Active Substance: LIDOCAINE HYDROCHLORIDE
     Dosage: 2%
     Route: 061
     Dates: start: 20200318
  48. XYLOCAINE [Concomitant]
     Active Substance: LIDOCAINE HYDROCHLORIDE
     Route: 048
     Dates: start: 20200422, end: 20200422
  49. BARYTGEN                           /00125002/ [Concomitant]
     Dosage: 2%
     Dates: start: 20200318
  50. INDIGOCARMINE DAIICHI [Concomitant]
     Dosage: 5 - 10 ML ONCE
     Route: 061
     Dates: start: 20160906, end: 20160906
  51. SOLDEM 1 [Concomitant]
     Active Substance: DEXTROSE\SODIUM CHLORIDE\SODIUM LACTATE
     Route: 042
     Dates: start: 20160712, end: 20160712
  52. SODIUM PICOSULFATE [Concomitant]
     Active Substance: SODIUM PICOSULFATE
     Dates: start: 20180911, end: 20180911
  53. PRIMPERAN [Concomitant]
     Active Substance: METOCLOPRAMIDE HYDROCHLORIDE
     Indication: COLONOSCOPY
     Route: 048
     Dates: start: 20160906, end: 20160906
  54. NIFLEC [Concomitant]
     Active Substance: POLYETHYLENE GLYCOLS\POTASSIUM CHLORIDE\SODIUM BICARBONATE\SODIUM CHLORIDE\SODIUM SULFATE
     Dosage: ONCE
     Route: 048
     Dates: start: 20170718, end: 20170718
  55. SALINE                             /00075401/ [Concomitant]
     Active Substance: SODIUM CHLORIDE
     Dates: start: 20170509, end: 20170509
  56. PROPOFOL. [Concomitant]
     Active Substance: PROPOFOL
     Indication: COLECTOMY TOTAL
     Route: 042
     Dates: start: 20200528, end: 20200528
  57. TADALAFIL. [Concomitant]
     Active Substance: TADALAFIL
     Indication: BENIGN PROSTATIC HYPERPLASIA
     Route: 048
     Dates: start: 20190712, end: 20191111
  58. DEQUALINIUM CHLORIDE [Concomitant]
     Active Substance: DEQUALINIUM CHLORIDE
     Indication: NASOPHARYNGITIS
     Route: 061
     Dates: start: 20170817, end: 20170821
  59. PENTASA [Concomitant]
     Active Substance: MESALAMINE
     Indication: COLITIS ULCERATIVE
     Route: 054
     Dates: end: 20160430
  60. USTEKINUMAB [Suspect]
     Active Substance: USTEKINUMAB
     Indication: COLITIS ULCERATIVE
     Dosage: I-0
     Route: 042
     Dates: start: 20160517
  61. AMLODIPINE BESILATE [Concomitant]
     Active Substance: AMLODIPINE BESYLATE
     Indication: HYPERTENSION
     Route: 048
  62. XYLOCAINE [Concomitant]
     Active Substance: LIDOCAINE HYDROCHLORIDE
     Indication: COLECTOMY TOTAL
     Route: 061
     Dates: start: 20181108, end: 20181108
  63. SOLDEM 1 [Concomitant]
     Active Substance: DEXTROSE\SODIUM CHLORIDE\SODIUM LACTATE
     Dates: start: 20180912, end: 20180912
  64. SOLDEM 1 [Concomitant]
     Active Substance: DEXTROSE\SODIUM CHLORIDE\SODIUM LACTATE
     Route: 042
     Dates: start: 20200318
  65. SODIUM PICOSULFATE [Concomitant]
     Active Substance: SODIUM PICOSULFATE
     Dosage: 0.75% ?ONCE
     Route: 048
     Dates: start: 20170717, end: 20170717
  66. NIFLEC [Concomitant]
     Active Substance: POLYETHYLENE GLYCOLS\POTASSIUM CHLORIDE\SODIUM BICARBONATE\SODIUM CHLORIDE\SODIUM SULFATE
     Route: 048
     Dates: start: 20200318
  67. NIFLEC [Concomitant]
     Active Substance: POLYETHYLENE GLYCOLS\POTASSIUM CHLORIDE\SODIUM BICARBONATE\SODIUM CHLORIDE\SODIUM SULFATE
     Route: 048
     Dates: start: 20200422, end: 20200422
  68. SALINE                             /00075401/ [Concomitant]
     Active Substance: SODIUM CHLORIDE
     Indication: LARYNGOSCOPY
     Route: 045
     Dates: start: 20160512, end: 20160512
  69. SALINE                             /00075401/ [Concomitant]
     Active Substance: SODIUM CHLORIDE
     Route: 042
     Dates: start: 20200414, end: 20200414
  70. BOSMIN                             /00003901/ [Concomitant]
     Active Substance: EPINEPHRINE
     Route: 061
     Dates: start: 20170509, end: 20170509
  71. BENZALKONIUM CHLORIDE. [Concomitant]
     Active Substance: BENZALKONIUM CHLORIDE
     Indication: CYSTOSCOPY
     Route: 061
     Dates: start: 20191018
  72. BICARBON                           /00049401/ [Concomitant]
     Indication: COLECTOMY TOTAL
     Route: 042
     Dates: start: 20200528, end: 20200528
  73. ACELIO [Concomitant]
     Active Substance: ACETAMINOPHEN
     Indication: COLECTOMY TOTAL
     Route: 042
     Dates: start: 20200528, end: 20200528
  74. INFLUENZA HA VACCINE [Concomitant]
     Active Substance: INFLUENZA VIRUS VACCINE
     Indication: ANTIVIRAL PROPHYLAXIS
     Route: 058
     Dates: start: 20191213, end: 20191213
  75. GENINAX [Concomitant]
     Active Substance: GARENOXACIN MESYLATE
     Indication: NASOPHARYNGITIS
     Route: 048
     Dates: start: 20170810, end: 20170817
  76. BENZALKONIUM CHLORIDE. [Concomitant]
     Active Substance: BENZALKONIUM CHLORIDE
     Indication: CYSTOSCOPY
     Route: 061
     Dates: start: 20191018, end: 20191018
  77. BENZALKONIUM CHLORIDE. [Concomitant]
     Active Substance: BENZALKONIUM CHLORIDE
     Route: 061
     Dates: start: 20191211, end: 20191211
  78. PARIET [Concomitant]
     Active Substance: RABEPRAZOLE SODIUM
     Indication: GASTROINTESTINAL DISORDER THERAPY
     Route: 048
     Dates: start: 20180301
  79. ANAPEINE [Concomitant]
     Active Substance: ROPIVACAINE HYDROCHLORIDE
     Indication: COLECTOMY TOTAL
     Route: 042
     Dates: start: 20200528, end: 20200528
  80. USTEKINUMAB [Suspect]
     Active Substance: USTEKINUMAB
     Dosage: LAST MAINTENANCE DOSE
     Route: 058
     Dates: start: 20170615
  81. RABEPRAZOLE SODIUM. [Concomitant]
     Active Substance: RABEPRAZOLE SODIUM
     Indication: GASTRITIS PROPHYLAXIS
     Route: 048
     Dates: start: 20180302
  82. XYLOCAINE [Concomitant]
     Active Substance: LIDOCAINE HYDROCHLORIDE
     Route: 061
     Dates: start: 20191018, end: 20191018
  83. XYLOCAINE [Concomitant]
     Active Substance: LIDOCAINE HYDROCHLORIDE
     Route: 061
     Dates: start: 20200528, end: 20200528
  84. BARYTGEN                           /00125002/ [Concomitant]
     Dates: start: 20160906, end: 20160906
  85. INDIGOCARMINE DAIICHI [Concomitant]
     Dosage: 5 - 10 ML ONCE
     Route: 061
     Dates: start: 20170718, end: 20170718
  86. INDIGOCARMINE DAIICHI [Concomitant]
     Dosage: 5 - 10 ML ONCE
     Route: 061
     Dates: start: 20170718, end: 20170718
  87. INDIGOCARMINE DAIICHI [Concomitant]
     Route: 061
     Dates: start: 20200318, end: 20200318
  88. SOLDEM 1 [Concomitant]
     Active Substance: DEXTROSE\SODIUM CHLORIDE\SODIUM LACTATE
     Route: 042
     Dates: start: 20170718, end: 20170718
  89. SOLDEM 1 [Concomitant]
     Active Substance: DEXTROSE\SODIUM CHLORIDE\SODIUM LACTATE
     Route: 042
     Dates: start: 20200422, end: 20200422
  90. SODIUM PICOSULFATE [Concomitant]
     Active Substance: SODIUM PICOSULFATE
     Dosage: 0.75% ?ONCE
     Dates: start: 20190924, end: 20190924
  91. NIFLEC [Concomitant]
     Active Substance: POLYETHYLENE GLYCOLS\POTASSIUM CHLORIDE\SODIUM BICARBONATE\SODIUM CHLORIDE\SODIUM SULFATE
     Indication: COLONOSCOPY
     Dosage: ONCE
     Route: 048
     Dates: start: 20160906, end: 20160906
  92. NIFLEC [Concomitant]
     Active Substance: POLYETHYLENE GLYCOLS\POTASSIUM CHLORIDE\SODIUM BICARBONATE\SODIUM CHLORIDE\SODIUM SULFATE
     Dosage: ONCE
     Route: 048
     Dates: start: 20190925, end: 20190925
  93. NIFLEC [Concomitant]
     Active Substance: POLYETHYLENE GLYCOLS\POTASSIUM CHLORIDE\SODIUM BICARBONATE\SODIUM CHLORIDE\SODIUM SULFATE
     Route: 048
     Dates: start: 20180912, end: 20180912
  94. BOSMIN                             /00003901/ [Concomitant]
     Active Substance: EPINEPHRINE
     Indication: LARYNGOSCOPY
     Dates: start: 20160512, end: 20160512
  95. SODIUM CHLORIDE. [Concomitant]
     Active Substance: SODIUM CHLORIDE
     Indication: BENIGN PROSTATIC HYPERPLASIA
     Route: 041
     Dates: start: 20191112, end: 20191112
  96. LACTEC [Concomitant]
     Active Substance: CALCIUM CHLORIDE ANHYDROUS\POTASSIUM CHLORIDE\SODIUM CHLORIDE\SODIUM LACTATE
     Indication: BIOPSY PROSTATE
     Route: 041
     Dates: start: 20190909, end: 20190909
  97. LACTEC [Concomitant]
     Active Substance: CALCIUM CHLORIDE ANHYDROUS\POTASSIUM CHLORIDE\SODIUM CHLORIDE\SODIUM LACTATE
     Route: 041
     Dates: start: 20190909, end: 20190909
  98. LACTEC [Concomitant]
     Active Substance: CALCIUM CHLORIDE ANHYDROUS\POTASSIUM CHLORIDE\SODIUM CHLORIDE\SODIUM LACTATE
     Route: 041
     Dates: start: 20191112, end: 20191114
  99. LACTEC [Concomitant]
     Active Substance: CALCIUM CHLORIDE ANHYDROUS\POTASSIUM CHLORIDE\SODIUM CHLORIDE\SODIUM LACTATE
     Route: 042
     Dates: start: 20200529, end: 20200530
  100. CARBAZOCHROME [Concomitant]
     Active Substance: CARBAZOCHROME
     Indication: BIOPSY PROSTATE
     Dosage: 10 ML
     Route: 041
     Dates: start: 20190909, end: 20190909
  101. SEVOFLURANE. [Concomitant]
     Active Substance: SEVOFLURANE
     Indication: BENIGN PROSTATIC HYPERPLASIA
     Route: 065
     Dates: start: 20191112, end: 20191112
  102. BUDESONIDE. [Concomitant]
     Active Substance: BUDESONIDE
     Indication: COLITIS ULCERATIVE
     Route: 054
     Dates: start: 20181108, end: 20181207
  103. BUDESONIDE. [Concomitant]
     Active Substance: BUDESONIDE
     Route: 054
     Dates: start: 20181208, end: 20190124
  104. CARBOCYSTEINE [Concomitant]
     Active Substance: CARBOCYSTEINE
     Route: 048
     Dates: start: 20160407, end: 20180426
  105. BENZALKONIUM CHLORIDE. [Concomitant]
     Active Substance: BENZALKONIUM CHLORIDE
     Indication: BENIGN PROSTATIC HYPERPLASIA
     Route: 061
     Dates: start: 20191112, end: 20191112
  106. REMIFENTANIL HYDROCHLORIDE. [Concomitant]
     Active Substance: REMIFENTANIL HYDROCHLORIDE
     Indication: BENIGN PROSTATIC HYPERPLASIA
     Dosage: ONCE
     Route: 042
  107. STERICLON B [Concomitant]
     Indication: COLECTOMY TOTAL
     Route: 061
     Dates: start: 20200528, end: 20200528
  108. ANAPEINE [Concomitant]
     Active Substance: ROPIVACAINE HYDROCHLORIDE
     Route: 042
     Dates: start: 20200528, end: 20200528
  109. LEUKERIN [Concomitant]
     Active Substance: MERCAPTOPURINE
     Indication: COLITIS ULCERATIVE
     Dosage: 10 %
     Route: 048
     Dates: end: 20200526
  110. LEUKERIN [Concomitant]
     Active Substance: MERCAPTOPURINE
     Dosage: 10 %
     Route: 048
  111. MIYA-BM [Concomitant]
     Active Substance: CLOSTRIDIUM BUTYRICUM SPORES STRAIN M-55
     Indication: COLITIS ULCERATIVE
     Route: 048
     Dates: start: 20171109, end: 20200526
  112. MIYA-BM [Concomitant]
     Active Substance: CLOSTRIDIUM BUTYRICUM SPORES STRAIN M-55
     Route: 048
     Dates: start: 20160516, end: 20171108
  113. ASACOL [Concomitant]
     Active Substance: MESALAMINE
     Route: 065
     Dates: start: 20171108
  114. ROSUVASTATIN. [Concomitant]
     Active Substance: ROSUVASTATIN
     Route: 048
     Dates: start: 20180301
  115. XYLOCAINE [Concomitant]
     Active Substance: LIDOCAINE HYDROCHLORIDE
     Indication: CYSTOSCOPY
     Dosage: ONCE?,5ML AND 10 ML
     Route: 014
     Dates: start: 20191112, end: 20191112
  116. XYLOCAINE [Concomitant]
     Active Substance: LIDOCAINE HYDROCHLORIDE
     Dates: start: 20191211, end: 20191211
  117. BARYTGEN                           /00125002/ [Concomitant]
     Route: 048
     Dates: start: 20200422, end: 20200422
  118. INDIGOCARMINE DAIICHI [Concomitant]
     Dates: start: 20180912, end: 20180912
  119. SOLDEM 1 [Concomitant]
     Active Substance: DEXTROSE\SODIUM CHLORIDE\SODIUM LACTATE
     Indication: COLONOSCOPY
     Route: 042
     Dates: start: 20160906, end: 20160906
  120. PRIMPERAN [Concomitant]
     Active Substance: METOCLOPRAMIDE HYDROCHLORIDE
     Route: 048
     Dates: start: 20160510, end: 20160510
  121. NIFLEC [Concomitant]
     Active Substance: POLYETHYLENE GLYCOLS\POTASSIUM CHLORIDE\SODIUM BICARBONATE\SODIUM CHLORIDE\SODIUM SULFATE
     Dosage: ONCE
     Route: 048
     Dates: start: 20160712, end: 20160712
  122. MEDICON                            /00048102/ [Concomitant]
     Active Substance: DEXTROMETHORPHAN HYDROBROMIDE
     Indication: PHARYNGITIS
     Route: 048
     Dates: start: 20160804, end: 20160807
  123. MOMETASONE FUROATE. [Concomitant]
     Active Substance: MOMETASONE FUROATE
     Indication: RHINITIS ALLERGIC
     Dosage: 2 PUFF
     Route: 045
     Dates: start: 20170509, end: 20170614
  124. BENZALKONIUM CHLORIDE. [Concomitant]
     Active Substance: BENZALKONIUM CHLORIDE
     Indication: BENIGN PROSTATIC HYPERPLASIA
     Dosage: ONCE
     Route: 061
     Dates: start: 20191112, end: 20191112
  125. ATROPINE SULFATE. [Concomitant]
     Active Substance: ATROPINE SULFATE
     Indication: SEDATION
     Route: 041
     Dates: start: 20191112, end: 20191112
  126. NEOSYNESIN                         /00116302/ [Concomitant]
     Indication: COLECTOMY TOTAL
     Route: 042
     Dates: start: 20200528, end: 20200528
  127. EPHEDRINE. [Concomitant]
     Active Substance: EPHEDRINE
     Indication: SEDATION
     Route: 041
     Dates: start: 20191112, end: 20191112
  128. EPHEDRINE. [Concomitant]
     Active Substance: EPHEDRINE
     Indication: COLECTOMY TOTAL
     Route: 042
     Dates: start: 20200528, end: 20200528
  129. SODIUM CHLORIDE. [Concomitant]
     Active Substance: SODIUM CHLORIDE
     Indication: CYSTOSCOPY
     Route: 042
     Dates: start: 20191018, end: 20191018
  130. SODIUM CHLORIDE. [Concomitant]
     Active Substance: SODIUM CHLORIDE
     Route: 041
     Dates: start: 20170509, end: 20170509
  131. TAMSULOSIN HYDROCHLORIDE. [Concomitant]
     Active Substance: TAMSULOSIN HYDROCHLORIDE
     Indication: BENIGN PROSTATIC HYPERPLASIA
     Route: 048
     Dates: start: 20160516, end: 20190412
  132. SOSEGON                            /00052101/ [Concomitant]
     Active Substance: PENTAZOCINE
     Indication: BIOPSY PROSTATE
     Dosage: ONCE
     Route: 030
     Dates: start: 20190909, end: 20190909
  133. CARBAZOCHROME W/CINCHOCAINE HYDROCHLORIDE/DIP [Concomitant]
     Indication: BENIGN PROSTATIC HYPERPLASIA
     Route: 041
     Dates: start: 20191112
  134. AUGMENTIN [Concomitant]
     Active Substance: AMOXICILLIN\CLAVULANATE POTASSIUM
     Indication: INFECTION PROPHYLAXIS
     Route: 048
     Dates: start: 20191211, end: 20191212
  135. XYLOCAINE [Concomitant]
     Active Substance: LIDOCAINE HYDROCHLORIDE
     Route: 061
     Dates: start: 20191112, end: 20191112
  136. BARYTGEN                           /00125002/ [Concomitant]
     Dates: start: 20180912, end: 20180912
  137. MEDICON                            /00048102/ [Concomitant]
     Active Substance: DEXTROMETHORPHAN HYDROBROMIDE
     Route: 048
     Dates: start: 20160616, end: 20160629
  138. SANBETASON [Concomitant]
     Active Substance: DEXAMETHASONE
     Indication: LARYNGOSCOPY
     Dosage: ONCE
     Route: 045
     Dates: start: 20160512, end: 20160512
  139. BOSMIN                             /00003901/ [Concomitant]
     Active Substance: EPINEPHRINE
     Route: 061
     Dates: start: 20200318
  140. PROPOFOL. [Concomitant]
     Active Substance: PROPOFOL
     Indication: BENIGN PROSTATIC HYPERPLASIA
     Route: 041
     Dates: start: 20191112, end: 20191112
  141. NEOSYNESIN                         /00116302/ [Concomitant]
     Indication: BENIGN PROSTATIC HYPERPLASIA
     Route: 041
     Dates: start: 20191112, end: 20191112
  142. TAMSULOSIN HYDROCHLORIDE. [Concomitant]
     Active Substance: TAMSULOSIN HYDROCHLORIDE
     Dates: start: 20190607, end: 20191111
  143. URIEF [Concomitant]
     Active Substance: SILODOSIN
     Indication: BENIGN PROSTATIC HYPERPLASIA
     Route: 048
     Dates: start: 20190413, end: 20190606
  144. CARBOCYSTEINE [Concomitant]
     Active Substance: CARBOCYSTEINE
     Indication: NASOPHARYNGITIS
     Route: 048
     Dates: start: 20170810, end: 20170817
  145. CARBOCYSTEINE [Concomitant]
     Active Substance: CARBOCYSTEINE
     Indication: PHARYNGITIS
     Route: 048
     Dates: start: 20170810, end: 20170817
  146. BENZALKONIUM CHLORIDE. [Concomitant]
     Active Substance: BENZALKONIUM CHLORIDE
     Route: 061
     Dates: start: 20191202, end: 20191202
  147. FENTANYL. [Concomitant]
     Active Substance: FENTANYL
     Indication: BENIGN PROSTATIC HYPERPLASIA
     Route: 042
     Dates: start: 20191112, end: 20191112
  148. HEPARIN [Concomitant]
     Active Substance: HEPARIN SODIUM
     Indication: COLECTOMY TOTAL
     Route: 042
     Dates: start: 20200528, end: 20200528
  149. USTEKINUMAB [Suspect]
     Active Substance: USTEKINUMAB
     Dosage: LAST RECENT LTE DOSE
     Route: 058
     Dates: start: 20200318
  150. ASACOL [Concomitant]
     Active Substance: MESALAMINE
     Route: 048
     Dates: start: 20171108
  151. ROSUVASTATIN. [Concomitant]
     Active Substance: ROSUVASTATIN
     Indication: HYPERLIPIDAEMIA
     Route: 048
     Dates: start: 20180302
  152. ROSUVASTATIN. [Concomitant]
     Active Substance: ROSUVASTATIN
     Route: 048
     Dates: start: 20180301
  153. XYLOCAINE [Concomitant]
     Active Substance: LIDOCAINE HYDROCHLORIDE
     Indication: COLITIS ULCERATIVE
     Dosage: ONCE
     Route: 061
     Dates: start: 20160712, end: 20160712
  154. XYLOCAINE [Concomitant]
     Active Substance: LIDOCAINE HYDROCHLORIDE
     Route: 061
     Dates: start: 20180912, end: 20180912
  155. BARYTGEN                           /00125002/ [Concomitant]
     Dosage: ONCE
     Route: 048
     Dates: start: 20160510, end: 20160510
  156. SODIUM PICOSULFATE [Concomitant]
     Active Substance: SODIUM PICOSULFATE
     Dosage: 0.75% ?ONCE
     Route: 048
     Dates: start: 20160711, end: 20160711
  157. PRIMPERAN [Concomitant]
     Active Substance: METOCLOPRAMIDE HYDROCHLORIDE
     Route: 048
     Dates: start: 20160906, end: 20160906
  158. PRIMPERAN [Concomitant]
     Active Substance: METOCLOPRAMIDE HYDROCHLORIDE
     Dates: start: 20200318
  159. BENZALKONIUM CHLORIDE. [Concomitant]
     Active Substance: BENZALKONIUM CHLORIDE
     Route: 061
     Dates: start: 20191211, end: 20191211
  160. SODIUM CHLORIDE. [Concomitant]
     Active Substance: SODIUM CHLORIDE
     Indication: LARYNGOSCOPY
     Route: 041
     Dates: start: 20160512, end: 20160512
  161. SODIUM CHLORIDE. [Concomitant]
     Active Substance: SODIUM CHLORIDE
     Dosage: 10%
     Route: 061
     Dates: start: 20200318
  162. ROCURONIUM [Concomitant]
     Active Substance: ROCURONIUM BROMIDE
     Indication: BENIGN PROSTATIC HYPERPLASIA
     Route: 041
     Dates: start: 20191112, end: 20191112
  163. AUGMENTIN [Concomitant]
     Active Substance: AMOXICILLIN\CLAVULANATE POTASSIUM
     Route: 048
     Dates: start: 20191202, end: 20191203
  164. BUSCOPAN [Concomitant]
     Active Substance: BUTYLSCOPOLAMINE BROMIDE
     Indication: PRODUCT USED FOR UNKNOWN INDICATION
     Route: 042
     Dates: start: 20200318
  165. POPIYODONE [Concomitant]
     Indication: COLECTOMY TOTAL
     Route: 061
     Dates: start: 20200528, end: 20200528
  166. DIPRIVAN [Concomitant]
     Active Substance: PROPOFOL
     Indication: COLECTOMY TOTAL
     Route: 042
     Dates: start: 20200528, end: 20200528
  167. USTEKINUMAB [Suspect]
     Active Substance: USTEKINUMAB
     Dosage: FIRST LTE DOSE
     Route: 058
     Dates: start: 20170824
  168. AMBROXOL HYDROCHLORIDE [Concomitant]
     Active Substance: AMBROXOL HYDROCHLORIDE
     Route: 048
     Dates: start: 20160616, end: 20160629
  169. XYLOCAINE [Concomitant]
     Active Substance: LIDOCAINE HYDROCHLORIDE
     Route: 061
     Dates: start: 20160512, end: 20160512

REACTIONS (1)
  - Colorectal cancer [Recovering/Resolving]

NARRATIVE: CASE EVENT DATE: 20200327
